FAERS Safety Report 6261138-X (Version None)
Quarter: 2009Q3

REPORT INFORMATION
  Report Type: 
  Country: None (occurrence: None)
  Receive Date: 20090607
  Receipt Date: 20090605
  Transmission Date: 20100115
  Serious: Yes (Other)
  Sender: FDA-Public Use
  Company Number: JPI-P-007546

PATIENT
  Sex: Female

DRUGS (2)
  1. LUVOX [Suspect]
     Indication: OBSESSIVE-COMPULSIVE DISORDER
     Dosage: ORAL
     Route: 048
     Dates: start: 20090301
  2. PROPOXYPHENE HCL CAP [Suspect]
     Indication: DRUG USE FOR UNKNOWN INDICATION

REACTIONS (2)
  - MULTIPLE DRUG OVERDOSE [None]
  - SEROTONIN SYNDROME [None]
